FAERS Safety Report 20012550 (Version 3)
Quarter: 2021Q4

REPORT INFORMATION
  Report Type: Spontaneous
  Country: US (occurrence: US)
  Receive Date: 20211029
  Receipt Date: 20211118
  Transmission Date: 20220303
  Serious: No
  Sender: FDA-Public Use
  Company Number: US-BIOGEN-2021BI01060424

PATIENT
  Age: 46 Year
  Sex: Female
  Weight: 85.806 kg

DRUGS (1)
  1. VUMERITY [Suspect]
     Active Substance: DIROXIMEL FUMARATE
     Indication: Multiple sclerosis
     Dosage: TAKE 1 CAPSULE (231 MG) TWICE A DAY FOR 7 DAYS, THEN TAKE 2 CAPSULES (462 MG) TWICE A DAY FOR 23 ...
     Route: 048
     Dates: start: 20211001

REACTIONS (7)
  - Product dose omission issue [Unknown]
  - Depression [Unknown]
  - Blister [Recovered/Resolved]
  - Pain [Recovered/Resolved]
  - Hot flush [Unknown]
  - Diarrhoea [Unknown]
  - Rash [Recovered/Resolved]

NARRATIVE: CASE EVENT DATE: 20211001
